FAERS Safety Report 7327268-6 (Version None)
Quarter: 2011Q1

REPORT INFORMATION
  Report Type: 
  Country: None (occurrence: None)
  Receive Date: 20110302
  Receipt Date: 20110223
  Transmission Date: 20110831
  Serious: Yes (Death, Hospitalization)
  Sender: FDA-Public Use
  Company Number: US-PFIZER INC-2011012859

PATIENT
  Age: 80 Year
  Sex: Female
  Weight: 78 kg

DRUGS (3)
  1. GEMTUZUMAB OZOGAMICIN [Suspect]
     Indication: ACUTE MYELOID LEUKAEMIA
     Dosage: 13 MG/M2, SINGLE OVER 2 HOURS ON DAY 8; 5.67 MG TOTAL DOSE ADMINISTERED THIS COURSE
     Route: 042
     Dates: start: 20100513, end: 20100513
  2. AZACITIDINE [Suspect]
     Dosage: 75 MG/M2 DAYS 1 - 7; 980 MG TOTAL DOSE ADMINISTERED THIS COURSE
     Route: 058
     Dates: start: 20100506, end: 20100512
  3. HYDROXYUREA [Concomitant]
     Dosage: 1500 MG, 2X/DAY BEFORE STARTING AZACITIDINE; 1500 MG TOTAL DOSE ADMINISTERED THIS COURSE
     Route: 048
     Dates: start: 20100428, end: 20100428

REACTIONS (7)
  - HYPOTENSION [None]
  - MYOCARDIAL ISCHAEMIA [None]
  - RESPIRATORY DISTRESS [None]
  - ACUTE MYELOID LEUKAEMIA [None]
  - PULMONARY OEDEMA [None]
  - DISEASE PROGRESSION [None]
  - MYOCARDIAL INFARCTION [None]
